FAERS Safety Report 7124740-9 (Version None)
Quarter: 2010Q4

REPORT INFORMATION
  Report Type: 
  Country: None (occurrence: None)
  Receive Date: 20101123
  Receipt Date: 20101123
  Transmission Date: 20110411
  Serious: Yes (Hospitalization)
  Sender: FDA-Public Use
  Company Number: None

PATIENT
  Age: 64 Year
  Sex: Female
  Weight: 79.3795 kg

DRUGS (17)
  1. QUETIAPINE FUMARATE [Suspect]
     Dosage: 100 MG DAILY PO
     Route: 048
  2. METOPROLOL [Concomitant]
  3. LEVETIRACETAM [Concomitant]
  4. SITAGLIPTIN [Concomitant]
  5. SIMVASTATIN [Concomitant]
  6. ZOLPIDEM [Concomitant]
  7. NIFEDIPINE [Concomitant]
  8. LOSARTAN [Concomitant]
  9. ENALAPRIL [Concomitant]
  10. ASPIRIN [Concomitant]
  11. IRON [Concomitant]
  12. COLCHICINE [Concomitant]
  13. HYDRALAZINE [Concomitant]
  14. LEVOTHYROXINE [Concomitant]
  15. PIOGLITAZONE [Concomitant]
  16. MULTIVIT [Concomitant]
  17. OMEPRAZOLE [Concomitant]

REACTIONS (1)
  - NEUROLEPTIC MALIGNANT SYNDROME [None]
